FAERS Safety Report 23556102 (Version 1)
Quarter: 2024Q1

REPORT INFORMATION
  Report Type: Report from Study
  Country: DE (occurrence: DE)
  Receive Date: 20240222
  Receipt Date: 20240222
  Transmission Date: 20240410
  Serious: Yes (Death, Other)
  Sender: FDA-Public Use
  Company Number: DE-BAXTER-2024BAX013228

PATIENT
  Age: 71 Year
  Sex: Female

DRUGS (4)
  1. OLIMEL E [Suspect]
     Active Substance: AMINO ACIDS\DEXTROSE\ELECTROLYTES NOS\SOYBEAN OIL
     Indication: Parenteral nutrition
     Dosage: 1500 ML ONCE IN THE EVENING VIA CENTRAL/PORT ROUTE
     Route: 042
     Dates: start: 20240105
  2. CERNEVIT [Suspect]
     Active Substance: VITAMINS
     Indication: Parenteral nutrition
     Dosage: 750 MG ONCE IN THE EVENING, VIA CENTRAL/PORT ROUTE
     Route: 042
     Dates: start: 20240105
  3. ELECTROLYTES NOS\MINERALS [Suspect]
     Active Substance: ELECTROLYTES NOS\MINERALS
     Indication: Parenteral nutrition
     Dosage: AT AN UNSPECIFIED DOSE ONCE IN THE EVENING, VIA CENTRAL/PORT ROUTE
     Route: 042
     Dates: start: 20240105
  4. UNSPECIFIED INGREDIENT [Suspect]
     Active Substance: UNSPECIFIED INGREDIENT
     Route: 065

REACTIONS (1)
  - Death [Fatal]

NARRATIVE: CASE EVENT DATE: 20240216
